FAERS Safety Report 8415154-X (Version None)
Quarter: 2012Q2

REPORT INFORMATION
  Report Type: 
  Country: None (occurrence: None)
  Receive Date: 20120606
  Receipt Date: 20120531
  Transmission Date: 20120825
  Serious: No
  Sender: FDA-Public Use
  Company Number: US-PFIZER INC-2012132292

PATIENT
  Sex: Female
  Weight: 48.526 kg

DRUGS (2)
  1. LEVOXYL [Suspect]
     Indication: HYPOTHYROIDISM
     Dosage: 100 UG,DAILY
     Route: 048
  2. CYTOMEL [Concomitant]
     Indication: THYROID DISORDER
     Dosage: 25 UG, UNK

REACTIONS (4)
  - DRUG INEFFECTIVE [None]
  - FATIGUE [None]
  - WEIGHT INCREASED [None]
  - MUSCLE SPASMS [None]
